FAERS Safety Report 18887871 (Version 1)
Quarter: 2021Q1

REPORT INFORMATION
  Report Type: Spontaneous
  Country: ES (occurrence: ES)
  Receive Date: 20210212
  Receipt Date: 20210212
  Transmission Date: 20210420
  Serious: Yes (Other)
  Sender: FDA-Public Use
  Company Number: ES-MALLINCKRODT-T202100558

PATIENT

DRUGS (1)
  1. UVADEX [Suspect]
     Active Substance: METHOXSALEN
     Indication: CUTANEOUS T-CELL LYMPHOMA
     Dosage: UNK (EXTRACORPOREAL)
     Route: 050

REACTIONS (4)
  - Therapy non-responder [Unknown]
  - Disease progression [Unknown]
  - Cutaneous T-cell lymphoma [Unknown]
  - Therapy partial responder [Unknown]
